FAERS Safety Report 15543604 (Version 1)
Quarter: 2018Q4

REPORT INFORMATION
  Report Type: Spontaneous
  Country: US (occurrence: US)
  Receive Date: 20181023
  Receipt Date: 20181023
  Transmission Date: 20190205
  Serious: Yes (Hospitalization)
  Sender: FDA-Public Use
  Company Number: US-ACTELION-A-US2018-180664

PATIENT
  Age: 2 Month
  Sex: Female

DRUGS (12)
  1. TRACLEER [Suspect]
     Active Substance: BOSENTAN
     Indication: PULMONARY HYPERTENSION
     Dosage: 15.6 MG, BID
     Route: 048
     Dates: start: 20180102, end: 20180108
  2. TRACLEER [Suspect]
     Active Substance: BOSENTAN
     Dosage: UNK
     Route: 048
  3. TRACLEER [Suspect]
     Active Substance: BOSENTAN
     Dosage: 5 MG, BID
     Route: 048
     Dates: start: 20180109
  4. CLONIDINE. [Concomitant]
     Active Substance: CLONIDINE
     Dosage: UNK
     Dates: start: 20180102, end: 20180120
  5. CYPROHEPTADINE. [Concomitant]
     Active Substance: CYPROHEPTADINE
     Dosage: 0.5 MG, BID
     Route: 048
     Dates: start: 20180103, end: 20180213
  6. SILDENAFIL. [Concomitant]
     Active Substance: SILDENAFIL
     Dosage: 10 MG, QID
     Route: 048
     Dates: start: 20180102
  7. TRACLEER [Suspect]
     Active Substance: BOSENTAN
     Dosage: 10 MG, BID
     Route: 048
     Dates: start: 20180108, end: 20180108
  8. FUROSEMIDE. [Concomitant]
     Active Substance: FUROSEMIDE
     Dosage: 5 MG, TID
     Route: 048
     Dates: start: 20180102
  9. ASPIRIN. [Concomitant]
     Active Substance: ASPIRIN
     Dosage: 20.25 MG, QD
     Route: 048
     Dates: start: 20180103
  10. DEXMEDETOMIDINE. [Concomitant]
     Active Substance: DEXMEDETOMIDINE
     Dosage: UNK
     Dates: start: 20180102, end: 20180119
  11. MIDAZOLAM [Concomitant]
     Active Substance: MIDAZOLAM HYDROCHLORIDE
     Dosage: UNK
     Dates: start: 20180105, end: 20180110
  12. MILRINONE [Concomitant]
     Active Substance: MILRINONE
     Dosage: 0.5 MCG/KG/MIN
     Dates: start: 20180102, end: 20180105

REACTIONS (1)
  - Aspartate aminotransferase increased [Recovered/Resolved]

NARRATIVE: CASE EVENT DATE: 20180102
